FAERS Safety Report 12194085 (Version 1)
Quarter: 2016Q1

REPORT INFORMATION
  Report Type: Spontaneous
  Country: US (occurrence: None)
  Receive Date: 20160318
  Receipt Date: 20160318
  Transmission Date: 20160526
  Serious: Yes (Death)
  Sender: FDA-Public Use
  Company Number: None

PATIENT
  Age: 26 Year
  Sex: Male

DRUGS (2)
  1. MEPHYTON [Suspect]
     Active Substance: PHYTONADIONE
     Indication: CYSTIC FIBROSIS
     Dates: start: 20150121
  2. CREON [Suspect]
     Active Substance: PANCRELIPASE AMYLASE\PANCRELIPASE LIPASE\PANCRELIPASE PROTEASE
     Indication: CYSTIC FIBROSIS
     Dosage: 5-3 CAPS WITH MEALS/SNACKS
     Route: 048
     Dates: start: 20150122

REACTIONS (1)
  - Death [None]
